FAERS Safety Report 16986180 (Version 6)
Quarter: 2019Q4

REPORT INFORMATION
  Report Type: Report from Study
  Country: TR (occurrence: TR)
  Receive Date: 20191101
  Receipt Date: 20191118
  Transmission Date: 20200122
  Serious: Yes (Life-Threatening, Hospitalization)
  Sender: FDA-Public Use
  Company Number: TR-EISAI MEDICAL RESEARCH-EC-2019-064636

PATIENT
  Age: 71 Year
  Sex: Male
  Weight: 71 kg

DRUGS (8)
  1. HIBOR [Concomitant]
     Dates: start: 20190912, end: 20191022
  2. PEMBROLIZUMAB. [Suspect]
     Active Substance: PEMBROLIZUMAB
     Route: 041
     Dates: start: 20191104, end: 20191104
  3. ALPHAGAN P [Concomitant]
     Active Substance: BRIMONIDINE TARTRATE
     Dates: start: 201301
  4. DUROGESIC [Concomitant]
     Active Substance: FENTANYL
     Dates: start: 20191012, end: 20191025
  5. LENVATINIB [Suspect]
     Active Substance: LENVATINIB
     Indication: NON-SMALL CELL LUNG CANCER METASTATIC
     Route: 048
     Dates: start: 20191012, end: 20191023
  6. PEMBROLIZUMAB. [Suspect]
     Active Substance: PEMBROLIZUMAB
     Indication: NON-SMALL CELL LUNG CANCER METASTATIC
     Route: 041
     Dates: start: 20191012, end: 20191012
  7. SPIRIVA [Concomitant]
     Active Substance: TIOTROPIUM BROMIDE MONOHYDRATE
     Dates: start: 20190912, end: 20191022
  8. GANFORT [Concomitant]
     Active Substance: BIMATOPROST\TIMOLOL
     Dates: start: 201301

REACTIONS (1)
  - Posterior reversible encephalopathy syndrome [Recovered/Resolved]

NARRATIVE: CASE EVENT DATE: 20191021
